FAERS Safety Report 11641157 (Version 2)
Quarter: 2016Q3

REPORT INFORMATION
  Report Type: Spontaneous
  Country: US (occurrence: US)
  Receive Date: 20151019
  Receipt Date: 20160919
  Transmission Date: 20161109
  Serious: No
  Sender: FDA-Public Use
  Company Number: US-ENDO PHARMACEUTICALS INC.-2015-002551

PATIENT
  Age: 64 Year
  Sex: Female
  Weight: 52.21 kg

DRUGS (3)
  1. AMITRIPTYLINE HCL 25MG [Suspect]
     Active Substance: AMITRIPTYLINE
     Indication: TOOTHACHE
     Route: 048
     Dates: start: 20141218, end: 20150216
  2. AMITRIPTYLINE HCL 25MG [Suspect]
     Active Substance: AMITRIPTYLINE
     Route: 048
     Dates: start: 2015
  3. AMITRIPTYLINE HCL 25MG [Suspect]
     Active Substance: AMITRIPTYLINE
     Indication: TRIGEMINAL NEURALGIA
     Route: 048
     Dates: start: 20150217, end: 20150403

REACTIONS (7)
  - Condition aggravated [Recovered/Resolved]
  - Product quality issue [Unknown]
  - Dysphonia [Not Recovered/Not Resolved]
  - Expired product administered [Recovered/Resolved]
  - Product use issue [Not Recovered/Not Resolved]
  - Trigeminal neuralgia [Recovered/Resolved]
  - Dry mouth [Recovered/Resolved]

NARRATIVE: CASE EVENT DATE: 20141218
